FAERS Safety Report 7580026-X (Version None)
Quarter: 2011Q2

REPORT INFORMATION
  Report Type: 
  Country: None (occurrence: None)
  Receive Date: 20110629
  Receipt Date: 20110622
  Transmission Date: 20111010
  Serious: Yes (Other)
  Sender: FDA-Public Use
  Company Number: CA-JNJFOC-20100705392

PATIENT
  Age: 10 Month
  Sex: Male

DRUGS (4)
  1. ALCOHOL [Suspect]
     Indication: DRUG EXPOSURE DURING PREGNANCY
     Route: 015
  2. MARIJUANA [Suspect]
     Indication: DRUG EXPOSURE DURING PREGNANCY
     Route: 015
  3. RISPERIDONE [Suspect]
     Indication: DRUG EXPOSURE DURING PREGNANCY
     Route: 015
  4. SERTRALINE HYDROCHLORIDE [Suspect]
     Indication: DRUG EXPOSURE DURING PREGNANCY
     Route: 015

REACTIONS (7)
  - LETHARGY [None]
  - PREMATURE BABY [None]
  - DEVELOPMENTAL DELAY [None]
  - VOMITING [None]
  - EPENDYMOMA [None]
  - FEEDING DISORDER [None]
  - FAILURE TO THRIVE [None]
